FAERS Safety Report 12564048 (Version 1)
Quarter: 2016Q3

REPORT INFORMATION
  Report Type: Spontaneous
  Country: US (occurrence: None)
  Receive Date: 20160715
  Receipt Date: 20160715
  Transmission Date: 20161109
  Serious: Yes (Death)
  Sender: FDA-Public Use
  Company Number: None

PATIENT
  Age: 60 Year
  Sex: Male

DRUGS (10)
  1. TAMSULOSIN [Concomitant]
     Active Substance: TAMSULOSIN
  2. OMEPRAZOLE. [Concomitant]
     Active Substance: OMEPRAZOLE
  3. DEXAMETHASONE. [Concomitant]
     Active Substance: DEXAMETHASONE
  4. METOPROLOL. [Concomitant]
     Active Substance: METOPROLOL
  5. SEVELAMER [Concomitant]
     Active Substance: SEVELAMER
  6. POMALYST [Suspect]
     Active Substance: POMALIDOMIDE
     Indication: PLASMA CELL MYELOMA
     Dosage: 2MG DAILY X21D/28D ORAL
     Route: 048
     Dates: start: 201502, end: 201503
  7. ONDANSETRON [Concomitant]
     Active Substance: ONDANSETRON
  8. ALBUTEROL. [Concomitant]
     Active Substance: ALBUTEROL
  9. HYDROXYZINE [Concomitant]
     Active Substance: HYDROXYZINE\HYDROXYZINE HYDROCHLORIDE
  10. SULFAMETHOXAZOLE/TRIMETHOPRIM [Concomitant]
     Active Substance: SULFAMETHOXAZOLE\TRIMETHOPRIM

REACTIONS (7)
  - Dyspnoea [None]
  - Constipation [None]
  - Renal haemorrhage [None]
  - Tachycardia [None]
  - Sepsis [None]
  - Flank pain [None]
  - Kidney enlargement [None]

NARRATIVE: CASE EVENT DATE: 20150502
